FAERS Safety Report 4755552-9 (Version None)
Quarter: 2005Q3

REPORT INFORMATION
  Report Type: 
  Country: None (occurrence: None)
  Receive Date: 20050830
  Receipt Date: 20050513
  Transmission Date: 20060218
  Serious: No
  Sender: FDA-Public Use
  Company Number: US-BRISTOL-MYERS SQUIBB COMPANY-12968228

PATIENT
  Age: 6 Year
  Sex: Male

DRUGS (3)
  1. ABILIFY [Suspect]
     Indication: ATTENTION DEFICIT/HYPERACTIVITY DISORDER
     Dosage: INITIATED SEPTEMBER 04; MOTHER ABRUPTLY STOPPED ADMIN. IN FEBRUARY 05; REST.(DATE NOT PROVIDED).
     Dates: start: 20040901
  2. ABILIFY [Suspect]
     Indication: BIPOLAR DISORDER
     Dosage: INITIATED SEPTEMBER 04; MOTHER ABRUPTLY STOPPED ADMIN. IN FEBRUARY 05; REST.(DATE NOT PROVIDED).
     Dates: start: 20040901
  3. ADDERALL 30 [Concomitant]

REACTIONS (2)
  - AGGRESSION [None]
  - DRUG WITHDRAWAL SYNDROME [None]
